FAERS Safety Report 5835870-3 (Version None)
Quarter: 2008Q3

REPORT INFORMATION
  Report Type: 
  Country: None (occurrence: None)
  Receive Date: 20080806
  Receipt Date: 20080730
  Transmission Date: 20090109
  Serious: Yes (Other)
  Sender: FDA-Public Use
  Company Number: US-GENENTECH-263913

PATIENT
  Sex: Female

DRUGS (3)
  1. XOLAIR [Suspect]
     Indication: ASTHMA
     Dosage: 150 MG, Q4W
     Dates: start: 20080618, end: 20080703
  2. DIOVAN [Concomitant]
     Indication: BLOOD PRESSURE
     Dosage: UNK UNK, UNKNOWN
  3. CLONAZEPAM [Concomitant]
     Indication: BLOOD PRESSURE
     Dosage: UNK UNK, UNKNOWN

REACTIONS (1)
  - HYPOTENSION [None]
